FAERS Safety Report 7451067-8 (Version None)
Quarter: 2011Q2

REPORT INFORMATION
  Report Type: 
  Country: None (occurrence: None)
  Receive Date: 20110502
  Receipt Date: 20110501
  Transmission Date: 20111010
  Serious: Yes (Hospitalization, Other)
  Sender: FDA-Public Use
  Company Number: VE-PFIZER INC-2011069994

PATIENT
  Age: 50 Year
  Sex: Male

DRUGS (1)
  1. LIPITOR [Suspect]
     Indication: HYPERTRIGLYCERIDAEMIA
     Dosage: 20 MG, 1X/DAY
     Route: 048
     Dates: start: 20080101

REACTIONS (4)
  - HEADACHE [None]
  - PYREXIA [None]
  - DIZZINESS [None]
  - MYOCARDIAL INFARCTION [None]
